FAERS Safety Report 25067774 (Version 1)
Quarter: 2025Q1

REPORT INFORMATION
  Report Type: Spontaneous
  Country: US (occurrence: US)
  Receive Date: 20250312
  Receipt Date: 20250312
  Transmission Date: 20250408
  Serious: Yes (Hospitalization)
  Sender: GLAND PHARMA LTD
  Company Number: US-GLANDPHARMA-US-2025GLNSPO00657

PATIENT
  Age: 34 Year
  Sex: Female

DRUGS (1)
  1. DOXYCYCLINE [Suspect]
     Active Substance: DOXYCYCLINE
     Indication: Oropharyngeal pain
     Route: 065

REACTIONS (5)
  - Jaundice [Unknown]
  - Weight decreased [Unknown]
  - Hypertension [Recovered/Resolved]
  - Hypersensitivity [Unknown]
  - Product use in unapproved indication [Unknown]
